FAERS Safety Report 7231429-4 (Version None)
Quarter: 2011Q1

REPORT INFORMATION
  Report Type: 
  Country: None (occurrence: None)
  Receive Date: 20110118
  Receipt Date: 20110104
  Transmission Date: 20110831
  Serious: Yes (Hospitalization)
  Sender: FDA-Public Use
  Company Number: PHHY2011GB00599

PATIENT
  Age: 62 Year
  Sex: Female

DRUGS (5)
  1. FLUOXETINE [Suspect]
     Dosage: 200 MG, QD
     Route: 048
  2. ASPIRIN [Suspect]
     Dosage: 75 MG, QD
     Route: 048
  3. TEMAZEPAM [Concomitant]
     Indication: POOR QUALITY SLEEP
     Dosage: 10 MG, PRN
     Route: 048
  4. IBUPROFEN [Suspect]
     Dosage: UNK
     Route: 048
  5. FERROUS SULFATE TAB [Suspect]
     Dosage: 300 MG, TID
     Route: 048

REACTIONS (1)
  - DUODENAL ULCER PERFORATION [None]
